FAERS Safety Report 8981041 (Version 1)
Quarter: 2012Q4

REPORT INFORMATION
  Report Type: 
  Country: JP (occurrence: JP)
  Receive Date: 20121211
  Receipt Date: 20121211
  Transmission Date: 20130627
  Serious: Yes (Other)
  Sender: FDA-Public Use
  Company Number: JP-ASTELLAS-2012JP011360

PATIENT
  Age: 34 Year
  Sex: Female

DRUGS (5)
  1. PROGRAF [Suspect]
     Indication: PROPHYLAXIS AGAINST GRAFT VERSUS HOST DISEASE
     Dosage: UNK
     Route: 065
     Dates: start: 2012
  2. FLUDARABINE [Concomitant]
     Indication: CORD BLOOD TRANSPLANT THERAPY
     Dosage: UNK
     Route: 065
     Dates: start: 2012
  3. L-PAM                              /00006401/ [Concomitant]
     Indication: CORD BLOOD TRANSPLANT THERAPY
     Dosage: UNK
     Route: 065
     Dates: start: 2012
  4. MYCOPHENOLATE MOFETIL [Concomitant]
     Indication: PROPHYLAXIS AGAINST GRAFT VERSUS HOST DISEASE
     Dosage: UNK
     Route: 065
     Dates: start: 2012
  5. G-CSF [Concomitant]
     Dosage: UNK
     Route: 065
     Dates: start: 2012

REACTIONS (2)
  - Drug ineffective [Unknown]
  - Acute graft versus host disease [Recovering/Resolving]
